FAERS Safety Report 7142628-4 (Version None)
Quarter: 2010Q4

REPORT INFORMATION
  Report Type: 
  Country: None (occurrence: None)
  Receive Date: 20101207
  Receipt Date: 20101130
  Transmission Date: 20110411
  Serious: Yes (Hospitalization, Other)
  Sender: FDA-Public Use
  Company Number: CA-ROCHE-735147

PATIENT
  Sex: Male

DRUGS (8)
  1. BEVACIZUMAB [Suspect]
     Indication: GLIOBLASTOMA
     Dosage: FORM: INFUSION.
     Route: 042
     Dates: start: 20101008
  2. OMEPRAZOLE [Concomitant]
     Dosage: DRUG: MYLAN OMEPRAZOLE
  3. CLOBAZAM [Concomitant]
     Dosage: DRUG: TEVA CLOBAZAM
  4. DEXAMETHASONE [Concomitant]
  5. REACTINE [Concomitant]
  6. LASIX [Concomitant]
  7. ALTACE [Concomitant]
  8. AMLODIPINE [Concomitant]

REACTIONS (12)
  - ASTHENIA [None]
  - BLOOD GLUCOSE INCREASED [None]
  - CONVULSION [None]
  - DECUBITUS ULCER [None]
  - DEPRESSED MOOD [None]
  - DYSURIA [None]
  - EPISTAXIS [None]
  - HAEMATOCHEZIA [None]
  - HEADACHE [None]
  - INFECTION [None]
  - RENAL PAIN [None]
  - TREMOR [None]
